FAERS Safety Report 4863687-5 (Version None)
Quarter: 2005Q4

REPORT INFORMATION
  Report Type: 
  Country: None (occurrence: None)
  Receive Date: 20051222
  Receipt Date: 20050623
  Transmission Date: 20060501
  Serious: Yes (Other)
  Sender: FDA-Public Use
  Company Number: US-GLAXOSMITHKLINE-A0563958A

PATIENT
  Age: 47 Year
  Sex: Male

DRUGS (16)
  1. FLONASE [Suspect]
     Indication: ASTHMA
     Dosage: 2PUFF PER DAY
     Route: 045
     Dates: start: 20040708, end: 20050621
  2. ADVAIR DISKUS 250/50 [Suspect]
     Indication: ASTHMA
     Dosage: 1PUFF TWICE PER DAY
     Route: 055
     Dates: start: 20040708, end: 20050621
  3. RITONAVIR [Suspect]
     Indication: HIV INFECTION
     Dosage: 100MG TWICE PER DAY
     Dates: start: 20040708, end: 20050621
  4. LEXIVA [Suspect]
     Dosage: 700MG TWICE PER DAY
     Dates: start: 20040708, end: 20050621
  5. TRUVADA [Concomitant]
     Dosage: 1TAB PER DAY
     Route: 048
  6. ALBUTEROL [Concomitant]
  7. DAPSONE [Concomitant]
     Dosage: 100MG PER DAY
     Route: 048
  8. KLONOPIN [Concomitant]
     Dosage: .5MG THREE TIMES PER DAY
     Route: 048
  9. NYSTATIN [Concomitant]
  10. TRAZODONE HCL [Concomitant]
     Dosage: 50MG AT NIGHT
     Route: 048
  11. LIDOCAINE [Concomitant]
     Dosage: 5%DS AS REQUIRED
  12. HYDROCHLOROTHIAZIDE [Concomitant]
     Dosage: 12.5MG PER DAY
     Dates: start: 20050621, end: 20050628
  13. HYDROCHLOROTHIAZIDE [Concomitant]
     Dosage: 25MG PER DAY
     Dates: start: 20050628, end: 20050725
  14. DEXAMETHASONE [Concomitant]
     Route: 030
     Dates: start: 20050630
  15. POTASSIUM CHLORIDE [Concomitant]
     Dosage: 10MEQ PER DAY
     Route: 048
     Dates: start: 20050701, end: 20050712
  16. POTASSIUM CHLORIDE [Concomitant]
     Dosage: 20MEQ PER DAY
     Route: 048
     Dates: start: 20050712

REACTIONS (1)
  - CUSHING'S SYNDROME [None]
